FAERS Safety Report 11951485 (Version 4)
Quarter: 2016Q2

REPORT INFORMATION
  Report Type: Report from Study
  Country: US (occurrence: US)
  Receive Date: 20160126
  Receipt Date: 20160520
  Transmission Date: 20160815
  Serious: Yes (Other)
  Sender: FDA-Public Use
  Company Number: US-AMGEN-USASL2016006274

PATIENT
  Age: 36 Year
  Sex: Male

DRUGS (2)
  1. ENBREL [Suspect]
     Active Substance: ETANERCEPT
     Dosage: 50 MG, 2 TIMES/WK
     Route: 065
     Dates: start: 20160129
  2. ENBREL [Suspect]
     Active Substance: ETANERCEPT
     Indication: PSORIASIS
     Dosage: 50 MG, QWK
     Route: 065
     Dates: start: 2011, end: 20111020

REACTIONS (11)
  - Skin disorder [Unknown]
  - Urticaria [Unknown]
  - Tooth disorder [Unknown]
  - Wrong technique in product usage process [Unknown]
  - Toothache [Unknown]
  - Therapeutic response decreased [Unknown]
  - Psoriasis [Unknown]
  - Tooth extraction [Unknown]
  - Tooth abscess [Unknown]
  - Feeling abnormal [Unknown]
  - Injection site pain [Unknown]

NARRATIVE: CASE EVENT DATE: 2016
